FAERS Safety Report 23760662 (Version 1)
Quarter: 2024Q2

REPORT INFORMATION
  Report Type: Report from Study
  Country: US (occurrence: US)
  Receive Date: 20240419
  Receipt Date: 20240419
  Transmission Date: 20240715
  Serious: Yes (Other)
  Sender: FDA-Public Use
  Company Number: US-TAKEDA-2024TUS021410

PATIENT
  Sex: Male
  Weight: 105 kg

DRUGS (1)
  1. DEXLANSOPRAZOLE [Suspect]
     Active Substance: DEXLANSOPRAZOLE
     Indication: Dyspepsia
     Dosage: 60 MILLIGRAM, QD
     Route: 048

REACTIONS (7)
  - Gallbladder obstruction [Unknown]
  - Product use issue [Unknown]
  - Throat irritation [Unknown]
  - Bowel movement irregularity [Unknown]
  - Dyspepsia [Unknown]
  - Eructation [Unknown]
  - Abdominal pain upper [Unknown]
